FAERS Safety Report 6657438-1 (Version None)
Quarter: 2010Q1

REPORT INFORMATION
  Report Type: 
  Country: None (occurrence: None)
  Receive Date: 20100330
  Receipt Date: 20100318
  Transmission Date: 20100710
  Serious: Yes (Hospitalization)
  Sender: FDA-Public Use
  Company Number: US-PFIZER INC-2010035166

PATIENT
  Age: 3 Year
  Sex: Female

DRUGS (4)
  1. DILANTIN-125 [Suspect]
     Dosage: 125 MG/5 ML, UNK
     Route: 048
  2. LAMICTAL CD [Suspect]
     Dosage: 5 MG, UNK
     Route: 048
  3. TYLENOL (CAPLET) [Suspect]
     Indication: PYREXIA
     Dosage: 240 MG, UNK
     Route: 048
  4. DEPAKOTE [Suspect]
     Dosage: 125 MG, UNK
     Route: 048

REACTIONS (5)
  - ALANINE AMINOTRANSFERASE INCREASED [None]
  - AMMONIA INCREASED [None]
  - ASPARTATE AMINOTRANSFERASE INCREASED [None]
  - BLOOD BILIRUBIN INCREASED [None]
  - LIVER FUNCTION TEST ABNORMAL [None]
